FAERS Safety Report 13132434 (Version 2)
Quarter: 2017Q1

REPORT INFORMATION
  Report Type: Spontaneous
  Country: US (occurrence: US)
  Receive Date: 20170120
  Receipt Date: 20170131
  Transmission Date: 20170428
  Serious: Yes (Life-Threatening, Hospitalization, Other)
  Sender: FDA-Public Use
  Company Number: US-ROCHE-1881568

PATIENT
  Sex: Female
  Weight: 49.49 kg

DRUGS (7)
  1. KLONOPIN [Suspect]
     Active Substance: CLONAZEPAM
     Indication: ANXIETY
     Route: 048
  2. KLONOPIN [Suspect]
     Active Substance: CLONAZEPAM
     Indication: PANIC ATTACK
     Route: 048
  3. KLONOPIN [Suspect]
     Active Substance: CLONAZEPAM
     Indication: PANIC DISORDER
  4. CLONAZEPAM. [Suspect]
     Active Substance: CLONAZEPAM
     Indication: PANIC DISORDER
  5. PEPCID (UNITED STATES) [Concomitant]
  6. CLONAZEPAM. [Suspect]
     Active Substance: CLONAZEPAM
     Indication: PANIC ATTACK
     Route: 048
  7. CLONAZEPAM. [Suspect]
     Active Substance: CLONAZEPAM
     Indication: ANXIETY

REACTIONS (30)
  - Pseudomonal sepsis [Recovered/Resolved]
  - Amnesia [Unknown]
  - Tinnitus [Unknown]
  - Constipation [Unknown]
  - Bile duct cancer [Recovering/Resolving]
  - Aortic arteriosclerosis [Unknown]
  - Inner ear disorder [Unknown]
  - Sleep apnoea syndrome [Unknown]
  - Nephrolithiasis [Not Recovered/Not Resolved]
  - Arrhythmia [Unknown]
  - Feeling jittery [Unknown]
  - Sjogren^s syndrome [Unknown]
  - Vertigo [Unknown]
  - Facial pain [Unknown]
  - Hypothyroidism [Unknown]
  - Anxiety [Unknown]
  - Oesophageal motility disorder [Unknown]
  - Flushing [Unknown]
  - Gastrooesophageal reflux disease [Unknown]
  - Dry eye [Unknown]
  - CREST syndrome [Unknown]
  - Cardiac disorder [Unknown]
  - Pancreatic disorder [Unknown]
  - Hyperhidrosis [Unknown]
  - Oesophageal ulcer [Unknown]
  - Liver disorder [Unknown]
  - Hypersensitivity [Unknown]
  - Arthritis [Not Recovered/Not Resolved]
  - Fibromyalgia [Unknown]
  - Headache [Unknown]
